FAERS Safety Report 5896116-3 (Version None)
Quarter: 2008Q3

REPORT INFORMATION
  Report Type: 
  Country: None (occurrence: None)
  Receive Date: 20080924
  Receipt Date: 20070410
  Transmission Date: 20090109
  Serious: Yes (Other)
  Sender: FDA-Public Use
  Company Number: US-ASTRAZENECA-2007UW02002

PATIENT
  Age: 496 Month
  Sex: Male
  Weight: 96.6 kg

DRUGS (6)
  1. SEROQUEL [Suspect]
     Indication: BIPOLAR DISORDER
     Dosage: UP TO 400 MG
     Route: 048
     Dates: start: 20020101, end: 20040201
  2. SEROQUEL [Suspect]
     Indication: DEPRESSION
     Dosage: UP TO 400 MG
     Route: 048
     Dates: start: 20020101, end: 20040201
  3. THORAZINE [Concomitant]
     Dates: start: 20020601, end: 20020901
  4. ZYPREXA/SYMBYAX [Concomitant]
     Dates: start: 20021101, end: 20030101
  5. LITHIUM CARBONATE [Concomitant]
     Dates: start: 20020101, end: 20030101
  6. MELLARIL [Concomitant]

REACTIONS (2)
  - CONVULSION [None]
  - TYPE 2 DIABETES MELLITUS [None]
